FAERS Safety Report 8175994-1 (Version None)
Quarter: 2012Q1

REPORT INFORMATION
  Report Type: 
  Country: None (occurrence: None)
  Receive Date: 20120301
  Receipt Date: 20120223
  Transmission Date: 20120608
  Serious: No
  Sender: FDA-Public Use
  Company Number: US-PFIZER INC-2011301265

PATIENT
  Sex: Female

DRUGS (2)
  1. NARDIL [Suspect]
     Dosage: 15 MG, UNK
     Route: 048
  2. ZOLPIDEM TARTRATE [Concomitant]
     Indication: SLEEP DISORDER
     Dosage: 10 MG, DAILY

REACTIONS (1)
  - PSORIASIS [None]
